FAERS Safety Report 10201292 (Version 2)
Quarter: 2014Q2

REPORT INFORMATION
  Report Type: Spontaneous
  Country: US (occurrence: US)
  Receive Date: 20140528
  Receipt Date: 20140613
  Transmission Date: 20141212
  Serious: Yes (Other)
  Sender: FDA-Public Use
  Company Number: US-PFIZER INC-2014143180

PATIENT
  Age: 58 Year
  Sex: Male
  Weight: 58.96 kg

DRUGS (6)
  1. LYRICA [Suspect]
     Indication: FIBROMYALGIA
     Dosage: 75 MG, 2X/DAY
     Dates: start: 201312
  2. HYDROCHLOROTHIAZIDE [Concomitant]
     Indication: BLOOD PRESSURE ABNORMAL
     Dosage: 25 MG, DAILY
  3. ATENOLOL [Concomitant]
     Indication: BLOOD PRESSURE ABNORMAL
     Dosage: 50 MG, DAILY
  4. RANITIDINE [Concomitant]
     Indication: COLITIS ULCERATIVE
     Dosage: 150 MG, 2X/DAY
  5. DIPENTUM [Concomitant]
     Indication: COLITIS ULCERATIVE
     Dosage: 250 MG, DAILY
  6. BACLOFEN [Concomitant]
     Dosage: 20 MG, 2X/DAY

REACTIONS (5)
  - Road traffic accident [Unknown]
  - Upper limb fracture [Unknown]
  - Clavicle fracture [Unknown]
  - Rib fracture [Unknown]
  - Limb injury [Unknown]
